FAERS Safety Report 6476298-5 (Version None)
Quarter: 2009Q4

REPORT INFORMATION
  Report Type: 
  Country: None (occurrence: None)
  Receive Date: 20091206
  Receipt Date: 20091019
  Transmission Date: 20100525
  Serious: No
  Sender: FDA-Public Use
  Company Number: US-AMGEN-KDL369746

PATIENT
  Sex: Female
  Weight: 37.2 kg

DRUGS (1)
  1. ENBREL [Suspect]
     Indication: JUVENILE ARTHRITIS

REACTIONS (2)
  - EXPOSURE TO COMMUNICABLE DISEASE [None]
  - UPPER RESPIRATORY TRACT INFECTION [None]
